FAERS Safety Report 18097924 (Version 1)
Quarter: 2020Q3

REPORT INFORMATION
  Report Type: Spontaneous
  Country: US (occurrence: US)
  Receive Date: 20200731
  Receipt Date: 20200731
  Transmission Date: 20201103
  Serious: No
  Sender: FDA-Public Use
  Company Number: US-HORIZON-TEP-1115-2020

PATIENT
  Age: 23 Year
  Sex: Female
  Weight: 124 kg

DRUGS (4)
  1. ATENOLOL. [Concomitant]
     Active Substance: ATENOLOL
     Dosage: 50MG
  2. METHIMAZOLE. [Concomitant]
     Active Substance: METHIMAZOLE
     Dosage: 10MG
  3. TEPEZZA [Suspect]
     Active Substance: TEPROTUMUMAB-TRBW
     Indication: TOXIC GOITRE
     Dosage: EVERY THREE WEEKS
     Route: 042
  4. NYSTATIN?TRIAMCINOLONE [Concomitant]

REACTIONS (2)
  - Feeling cold [Unknown]
  - Product preparation error [Unknown]
